FAERS Safety Report 11639769 (Version 1)
Quarter: 2015Q4

REPORT INFORMATION
  Report Type: Report from Study
  Country: AU (occurrence: AU)
  Receive Date: 20151019
  Receipt Date: 20151019
  Transmission Date: 20160304
  Serious: Yes (Hospitalization)
  Sender: FDA-Public Use
  Company Number: PHHY2015AU106269

PATIENT
  Sex: Male

DRUGS (2)
  1. CLOZARIL [Suspect]
     Active Substance: CLOZAPINE
     Dosage: UNK
     Route: 048
     Dates: start: 20150908
  2. CLOZARIL [Suspect]
     Active Substance: CLOZAPINE
     Indication: SCHIZOPHRENIA
     Dosage: 275 OT, UNK
     Route: 048
     Dates: start: 20150206

REACTIONS (5)
  - Anosognosia [Unknown]
  - Arthropod bite [Unknown]
  - Suicidal ideation [Unknown]
  - Vomiting [Unknown]
  - Malaise [Unknown]
